FAERS Safety Report 12632107 (Version 2)
Quarter: 2016Q3

REPORT INFORMATION
  Report Type: Spontaneous
  Country: US (occurrence: US)
  Receive Date: 20160808
  Receipt Date: 20160808
  Transmission Date: 20161109
  Serious: No
  Sender: FDA-Public Use
  Company Number: US-BEH-2016061896

PATIENT
  Sex: Female
  Weight: 48 kg

DRUGS (21)
  1. CLEAR EYES [Concomitant]
     Active Substance: NAPHAZOLINE HYDROCHLORIDE
  2. PATADAY [Concomitant]
     Active Substance: OLOPATADINE HYDROCHLORIDE
  3. MIRALAX [Concomitant]
     Active Substance: POLYETHYLENE GLYCOL 3350
  4. L-GLUTAMINE [Concomitant]
  5. KLONOPIN [Concomitant]
     Active Substance: CLONAZEPAM
  6. VALTREX [Concomitant]
     Active Substance: VALACYCLOVIR HYDROCHLORIDE
  7. FIORINAL [Concomitant]
     Active Substance: ASPIRIN\BUTALBITAL\CAFFEINE
  8. IPRATROPIUM [Concomitant]
     Active Substance: IPRATROPIUM
  9. HIZENTRA [Suspect]
     Active Substance: HUMAN IMMUNOGLOBULIN G
     Indication: HYPOGAMMAGLOBULINAEMIA
     Route: 058
     Dates: start: 20150921
  10. ALBUTEROL. [Concomitant]
     Active Substance: ALBUTEROL
  11. VITAMIN B [Concomitant]
     Active Substance: VITAMIN B
  12. HIZENTRA [Suspect]
     Active Substance: HUMAN IMMUNOGLOBULIN G
     Route: 058
  13. ACETAMINOPHEN. [Concomitant]
     Active Substance: ACETAMINOPHEN
  14. DIPHENHYDRAMINE. [Concomitant]
     Active Substance: DIPHENHYDRAMINE
  15. LIDOCAINE. [Concomitant]
     Active Substance: LIDOCAINE
  16. EPIPEN [Concomitant]
     Active Substance: EPINEPHRINE
  17. PAPAYA. [Concomitant]
     Active Substance: PAPAYA
  18. PROMETHAZINE [Concomitant]
     Active Substance: PROMETHAZINE\PROMETHAZINE HYDROCHLORIDE
  19. MAGNESIUM [Concomitant]
     Active Substance: MAGNESIUM
  20. HIZENTRA [Suspect]
     Active Substance: HUMAN IMMUNOGLOBULIN G
     Route: 058
  21. LICORICE. [Concomitant]
     Active Substance: LICORICE

REACTIONS (4)
  - Administration site erythema [Unknown]
  - Impaired healing [Unknown]
  - Administration site irritation [Unknown]
  - Administration site extravasation [Unknown]
